FAERS Safety Report 7017395-5 (Version None)
Quarter: 2010Q3

REPORT INFORMATION
  Report Type: 
  Country: None (occurrence: None)
  Receive Date: 20100928
  Receipt Date: 20100923
  Transmission Date: 20110219
  Serious: Yes (Death, Other)
  Sender: FDA-Public Use
  Company Number: US-BRISTOL-MYERS SQUIBB COMPANY-15303571

PATIENT
  Age: 77 Year
  Sex: Male
  Weight: 80 kg

DRUGS (11)
  1. COUMADIN [Suspect]
     Indication: ATRIAL FIBRILLATION
     Route: 048
  2. LEXISCAN [Suspect]
     Indication: SCAN MYOCARDIAL PERFUSION
     Dosage: FORMULATION:0.08MG/ML,INJ;
     Route: 042
     Dates: start: 20100717, end: 20100717
  3. LANOXIN [Concomitant]
     Dosage: TABLET
  4. NADOLOL [Concomitant]
  5. LIPITOR [Concomitant]
     Dosage: TABLET
  6. POTASSIUM CHLORIDE [Concomitant]
     Dosage: CAPSULE
  7. ADVAIR DISKUS 100/50 [Concomitant]
  8. MULTI-VITAMIN [Concomitant]
     Dosage: TABLET
  9. ACCUPRIL [Concomitant]
     Dosage: TABLET
  10. FUROSEMIDE [Concomitant]
     Dosage: TABLET
  11. TRACLEER [Concomitant]
     Dosage: TABLET

REACTIONS (5)
  - DIZZINESS [None]
  - FALL [None]
  - HAEMORRHAGE [None]
  - LOSS OF CONSCIOUSNESS [None]
  - SKULL FRACTURE [None]
